FAERS Safety Report 8161575-2 (Version None)
Quarter: 2012Q1

REPORT INFORMATION
  Report Type: 
  Country: None (occurrence: None)
  Receive Date: 20120224
  Receipt Date: 20120217
  Transmission Date: 20120608
  Serious: Yes (Other)
  Sender: FDA-Public Use
  Company Number: GR-PFIZER INC-2012042888

PATIENT
  Age: 3 Year

DRUGS (4)
  1. MEDROL [Suspect]
     Indication: ASTHMA
  2. ALBUTEROL [Suspect]
     Indication: ASTHMA
  3. FLUTICASONE PROPIONATE [Suspect]
     Indication: ASTHMA
  4. CLARITHROMYCIN [Suspect]
     Indication: ASTHMA

REACTIONS (1)
  - ENTEROCOLITIS [None]
